FAERS Safety Report 13511790 (Version 2)
Quarter: 2017Q2

REPORT INFORMATION
  Report Type: Report from Study
  Country: CN (occurrence: CN)
  Receive Date: 20170504
  Receipt Date: 20170622
  Transmission Date: 20170830
  Serious: Yes (Death)
  Sender: FDA-Public Use
  Company Number: CN-SA-2017SA077687

PATIENT
  Age: 27 Year
  Sex: Male
  Weight: 72.5 kg

DRUGS (1)
  1. CEREZYME [Suspect]
     Active Substance: IMIGLUCERASE
     Indication: GAUCHER^S DISEASE
     Dosage: DOSE:5.51 UNIT(S)/KILOGRAM BODYWEIGHT
     Route: 041
     Dates: start: 200909, end: 20170226

REACTIONS (2)
  - Myocardial infarction [Fatal]
  - Cyanosis [Fatal]

NARRATIVE: CASE EVENT DATE: 20170228
